FAERS Safety Report 4436333-2 (Version None)
Quarter: 2004Q3

REPORT INFORMATION
  Report Type: 
  Country: None (occurrence: None)
  Receive Date: 20040728
  Receipt Date: 20030617
  Transmission Date: 20050211
  Serious: Yes (Hospitalization)
  Sender: FDA-Public Use
  Company Number: 201246

PATIENT
  Age: 71 Year
  Sex: Female

DRUGS (2)
  1. RITUXAN [Suspect]
     Indication: CHRONIC LYMPHOCYTIC LEUKAEMIA
     Dosage: 375 MG/M2, 1/WEEK, INTRAVENOUS; INTRAVENOUS
     Route: 042
     Dates: start: 19991101
  2. RITUXAN [Suspect]
     Indication: CHRONIC LYMPHOCYTIC LEUKAEMIA
     Dosage: 375 MG/M2, 1/WEEK, INTRAVENOUS; INTRAVENOUS
     Route: 042
     Dates: start: 20030609

REACTIONS (1)
  - ELECTROCARDIOGRAM CHANGE [None]
